FAERS Safety Report 6327823-6 (Version None)
Quarter: 2009Q3

REPORT INFORMATION
  Report Type: 
  Country: None (occurrence: None)
  Receive Date: 20090824
  Receipt Date: 20090817
  Transmission Date: 20100115
  Serious: Yes (Other)
  Sender: FDA-Public Use
  Company Number: 2009SP020378

PATIENT
  Age: 26 Year
  Sex: Male

DRUGS (6)
  1. DESLORATADINE [Suspect]
     Indication: DRUG USE FOR UNKNOWN INDICATION
     Dosage: 5 MG; QD; PO
     Route: 048
     Dates: start: 20081222, end: 20090302
  2. PRIMAXIN [Suspect]
     Indication: SEPSIS
     Dosage: 3 GM; QD; IV
     Route: 042
     Dates: start: 20090220, end: 20090303
  3. ZYPREXA [Suspect]
     Indication: DRUG USE FOR UNKNOWN INDICATION
     Dosage: 10 MG; QD; PO
     Route: 048
     Dates: start: 20081211, end: 20090302
  4. TOPLEXIL (APLEXIL) [Suspect]
     Indication: DRUG USE FOR UNKNOWN INDICATION
     Dosage: 2 DF; QD; PO
     Route: 048
     Dates: start: 20090211, end: 20090302
  5. PREDNISONE [Suspect]
     Indication: DRUG USE FOR UNKNOWN INDICATION
     Dosage: 20 MG; QD; PO
     Route: 048
     Dates: start: 20081231, end: 20090302
  6. PENTACARINAT [Concomitant]

REACTIONS (6)
  - CHOLESTASIS [None]
  - CYTOLYTIC HEPATITIS [None]
  - HYPOTENSION [None]
  - PANCYTOPENIA [None]
  - PYREXIA [None]
  - SEPSIS [None]
